APPROVED DRUG PRODUCT: ZOLPIDEM TARTRATE
Active Ingredient: ZOLPIDEM TARTRATE
Strength: 6.25MG
Dosage Form/Route: TABLET, EXTENDED RELEASE;ORAL
Application: A078970 | Product #001 | TE Code: AB
Applicant: LUPIN LTD
Approved: Sep 11, 2013 | RLD: No | RS: No | Type: RX